FAERS Safety Report 6703394-7 (Version None)
Quarter: 2010Q2

REPORT INFORMATION
  Report Type: 
  Country: None (occurrence: None)
  Receive Date: 20100423
  Receipt Date: 20100104
  Transmission Date: 20101027
  Serious: No
  Sender: FDA-Public Use
  Company Number: SPV1-2010-00604

PATIENT

DRUGS (1)
  1. VYVANSE [Suspect]

REACTIONS (2)
  - DRUG DIVERSION [None]
  - THEFT [None]
